FAERS Safety Report 5682136-0 (Version None)
Quarter: 2008Q1

REPORT INFORMATION
  Report Type: 
  Country: None (occurrence: None)
  Receive Date: 20080327
  Receipt Date: 20080317
  Transmission Date: 20080703
  Serious: Yes (Hospitalization, Other)
  Sender: FDA-Public Use
  Company Number: GB-RANBAXY-2008RR-13857

PATIENT

DRUGS (2)
  1. CLARITHROMYCIN [Suspect]
     Indication: LOWER RESPIRATORY TRACT INFECTION
     Dosage: 500 MG, UNK
     Route: 048
     Dates: start: 20070205, end: 20070209
  2. EFALEX [Concomitant]
     Indication: PREMENSTRUAL SYNDROME
     Dosage: UNK

REACTIONS (3)
  - ABDOMINAL PAIN [None]
  - ABSCESS [None]
  - INTESTINAL PERFORATION [None]
